FAERS Safety Report 24831101 (Version 1)
Quarter: 2025Q1

REPORT INFORMATION
  Report Type: Spontaneous
  Country: US (occurrence: US)
  Receive Date: 20250110
  Receipt Date: 20250110
  Transmission Date: 20250408
  Serious: Yes (Death, Hospitalization, Other)
  Sender: BAYER HEALTHCARE LLC
  Company Number: US-BAYER-2025A003188

PATIENT
  Age: 45 Year
  Sex: Female

DRUGS (10)
  1. ASPIRIN [Suspect]
     Active Substance: ASPIRIN
     Route: 048
  2. IRON [Suspect]
     Active Substance: IRON
  3. METHAMPHETAMINE [Suspect]
     Active Substance: METHAMPHETAMINE
  4. DIPHENHYDRAMINE [Suspect]
     Active Substance: DIPHENHYDRAMINE
  5. RISPERIDONE [Suspect]
     Active Substance: RISPERIDONE
  6. IBUPROFEN [Suspect]
     Active Substance: IBUPROFEN
  7. HYDROXYZINE [Suspect]
     Active Substance: HYDROXYZINE HYDROCHLORIDE
  8. GABAPENTIN [Suspect]
     Active Substance: GABAPENTIN
  9. ATORVASTATIN [Suspect]
     Active Substance: ATORVASTATIN
  10. HALOPERIDOL [Suspect]
     Active Substance: HALOPERIDOL

REACTIONS (2)
  - Toxicity to various agents [Fatal]
  - Completed suicide [Fatal]
